FAERS Safety Report 9236699 (Version 1)
Quarter: 2013Q2

REPORT INFORMATION
  Report Type: Spontaneous
  Country: US (occurrence: US)
  Receive Date: 20130417
  Receipt Date: 20130417
  Transmission Date: 20140414
  Serious: Yes (Death)
  Sender: FDA-Public Use
  Company Number: US-GLAXOSMITHKLINE-A1019832A

PATIENT
  Age: 47 Year
  Sex: Female

DRUGS (12)
  1. PROMACTA [Suspect]
     Indication: PRODUCT USED FOR UNKNOWN INDICATION
     Dosage: 50MG PER DAY
     Route: 048
  2. WARFARIN [Concomitant]
  3. METOPROLOL TARTRATE [Concomitant]
  4. SERTRALINE [Concomitant]
  5. FOLIC ACID [Concomitant]
  6. RENA-VITE [Concomitant]
  7. PREDNISONE [Concomitant]
  8. PANTOPRAZOLE [Concomitant]
  9. DILAUDID [Concomitant]
  10. FENTANYL [Concomitant]
  11. IMODIUM ADVANCED [Concomitant]
  12. TIZANIDINE [Concomitant]

REACTIONS (1)
  - Death [Fatal]
